FAERS Safety Report 18982127 (Version 2)
Quarter: 2021Q1

REPORT INFORMATION
  Report Type: Report from Study
  Country: US (occurrence: US)
  Receive Date: 20210308
  Receipt Date: 20210323
  Transmission Date: 20210420
  Serious: Yes (Hospitalization, Other)
  Sender: FDA-Public Use
  Company Number: US-BAYER-2021-097016

PATIENT
  Age: 44 Year
  Sex: Female
  Weight: 96.15 kg

DRUGS (5)
  1. TREPROSTINIL. [Concomitant]
     Active Substance: TREPROSTINIL
     Dosage: UNK
  2. ADEMPAS [Suspect]
     Active Substance: RIOCIGUAT
     Indication: PULMONARY ARTERIAL HYPERTENSION
     Dosage: UNK
     Dates: start: 20140519
  3. ADEMPAS [Suspect]
     Active Substance: RIOCIGUAT
     Indication: PULMONARY ARTERIAL HYPERTENSION
     Dosage: 2.5 MG, TID
     Route: 048
  4. WARFARIN [Concomitant]
     Active Substance: WARFARIN
     Dosage: UNK
  5. OPSUMIT [Concomitant]
     Active Substance: MACITENTAN
     Dosage: UNK

REACTIONS (5)
  - Cough [None]
  - Device related sepsis [None]
  - Nausea [None]
  - Pyrexia [None]
  - Gastrointestinal disorder [None]

NARRATIVE: CASE EVENT DATE: 20210303
